FAERS Safety Report 7068021-0 (Version None)
Quarter: 2010Q4

REPORT INFORMATION
  Report Type: 
  Country: None (occurrence: None)
  Receive Date: 20101028
  Receipt Date: 20101021
  Transmission Date: 20110411
  Serious: Yes (Other)
  Sender: FDA-Public Use
  Company Number: JP-SHIRE-SPV1-2010-01753

PATIENT
  Age: 49 Year
  Sex: Female

DRUGS (3)
  1. FOSRENOL [Suspect]
     Dosage: UNK, UNKNOWN
     Route: 048
  2. GLUCOSE [Concomitant]
     Indication: HYPOGLYCAEMIA
     Dosage: 20 ML, UNK
     Route: 042
  3. INSULIN [Concomitant]
     Indication: DIABETES MELLITUS
     Dosage: UNK, UNKNOWN
     Route: 065

REACTIONS (4)
  - DECREASED APPETITE [None]
  - DEPRESSED LEVEL OF CONSCIOUSNESS [None]
  - HYPOGLYCAEMIA [None]
  - X-RAY ABNORMAL [None]
